FAERS Safety Report 4351089-X (Version None)
Quarter: 2004Q2

REPORT INFORMATION
  Report Type: 
  Country: None (occurrence: None)
  Receive Date: 20040428
  Receipt Date: 20030701
  Transmission Date: 20050107
  Serious: Yes (Death)
  Sender: FDA-Public Use
  Company Number: US-JNJFOC-20030701089

PATIENT
  Age: 68 Year
  Sex: Male

DRUGS (5)
  1. ULTRAM [Suspect]
     Indication: BONE NEOPLASM MALIGNANT
  2. NITROGLYCERIN [Concomitant]
  3. TOPRAL (SULTOPRIDE) [Concomitant]
  4. PEPCID [Concomitant]
  5. REMERON [Concomitant]

REACTIONS (1)
  - DEATH [None]
